FAERS Safety Report 19813872 (Version 1)
Quarter: 2021Q3

REPORT INFORMATION
  Report Type: Spontaneous
  Country: US (occurrence: US)
  Receive Date: 20210907
  Receipt Date: 20210907
  Transmission Date: 20211014
  Serious: Yes (Death)
  Sender: FDA-Public Use
  Company Number: None

PATIENT
  Age: 84 Year
  Sex: Female

DRUGS (1)
  1. PROCRIT [Suspect]
     Active Substance: ERYTHROPOIETIN
     Indication: RENAL FAILURE
     Dosage: ?          OTHER STRENGTH:10,000U/M;OTHER DOSE:10,000U;?
     Route: 058
     Dates: start: 20210528, end: 20210604

REACTIONS (1)
  - Death [None]

NARRATIVE: CASE EVENT DATE: 20210604
